FAERS Safety Report 17934554 (Version 1)
Quarter: 2020Q2

REPORT INFORMATION
  Report Type: Spontaneous
  Country: ES (occurrence: ES)
  Receive Date: 20200624
  Receipt Date: 20200624
  Transmission Date: 20200714
  Serious: Yes (Hospitalization)
  Sender: FDA-Public Use
  Company Number: ES-TEVA-2020-ES-1790432

PATIENT
  Age: 86 Year
  Sex: Female

DRUGS (12)
  1. GEMFIBROZILO 600 MG COMPRIMIDO [Suspect]
     Active Substance: GEMFIBROZIL
     Indication: CARDIAC DISORDER
     Dosage: 600 MG
     Route: 048
     Dates: start: 20120302
  2. ASPIRIN. [Concomitant]
     Active Substance: ASPIRIN
  3. PLAVIX 75 MG COMPRIMIDOS RECUBIERTOS CON PELICULA 84 COMPRIMIDOS [Concomitant]
  4. ALOPURINOL 300 MG COMPRIMIDO [Concomitant]
  5. ATORVASTATINA 40 MG COMPRIMIDO [Suspect]
     Active Substance: ATORVASTATIN
     Indication: CEREBROVASCULAR DISORDER
     Dosage: 40 MG
     Route: 048
     Dates: start: 20191022
  6. FUROSEMIDA 40 MG COMPRIMIDO [Suspect]
     Active Substance: FUROSEMIDE
     Indication: DYSPNOEA
     Dosage: 20 MG
     Route: 048
     Dates: start: 20190411
  7. METFORMINA 850 MG COMPRIMIDO [Concomitant]
  8. NITROFIX 5 MG PARCHES TRANSDERMICOS EFG, 30 PARCHES [Concomitant]
  9. PARACETAMOL 1.000 MG COMPRIMIDO [Concomitant]
  10. MEGESTROL 160 MG COMPRIMIDO [Concomitant]
  11. CO-DIOVAN FORTE 320 MG/25 MG COMPRIMIDOS RECUBIERTOS CON PELICULA , 28 [Suspect]
     Active Substance: HYDROCHLOROTHIAZIDE\VALSARTAN
     Indication: CARDIAC DISORDER
     Dosage: 320 MG
     Route: 048
     Dates: start: 20191022
  12. PANTOPRAZOL 20 MG COMPRIMIDO [Concomitant]
     Active Substance: PANTOPRAZOLE SODIUM

REACTIONS (3)
  - Hypotension [Recovered/Resolved]
  - Pancreatitis [Unknown]
  - Metabolic acidosis [Recovered/Resolved]

NARRATIVE: CASE EVENT DATE: 20200604
